FAERS Safety Report 6012784-X (Version None)
Quarter: 2008Q4

REPORT INFORMATION
  Report Type: 
  Country: None (occurrence: None)
  Receive Date: 20081219
  Receipt Date: 20080918
  Transmission Date: 20090506
  Serious: Yes (Other)
  Sender: FDA-Public Use
  Company Number: FR-JNJFOC-20081202583

PATIENT
  Age: 84 Year
  Sex: Female

DRUGS (4)
  1. ECONAZOLE NITRATE [Suspect]
     Indication: DRUG USE FOR UNKNOWN INDICATION
     Route: 003
  2. WARFARIN SODIUM [Interacting]
     Indication: DRUG USE FOR UNKNOWN INDICATION
     Route: 065
  3. OFLOXACIN [Concomitant]
  4. AMOXICILLIN + CLAVULANATE POTASSIUM [Concomitant]

REACTIONS (2)
  - DRUG INTERACTION [None]
  - INTERNATIONAL NORMALISED RATIO INCREASED [None]
